FAERS Safety Report 5425848-6 (Version None)
Quarter: 2007Q3

REPORT INFORMATION
  Report Type: 
  Country: None (occurrence: None)
  Receive Date: 20070823
  Receipt Date: 20070813
  Transmission Date: 20080115
  Serious: Yes (Death, Hospitalization)
  Sender: FDA-Public Use
  Company Number: 159423USA

PATIENT
  Age: 82 Year
  Sex: Male

DRUGS (11)
  1. FLUOROURACIL [Suspect]
     Indication: COLORECTAL CANCER METASTATIC
     Dosage: 1800 MILLIGRAM/SQ. METER 2 WEEK, INTRAVENOUS DRIP
     Route: 041
     Dates: start: 20070326, end: 20070711
  2. FOLINIC ACID [Suspect]
     Indication: COLORECTAL CANCER METASTATIC
     Dosage: 2 WEEK, INTRAVENOUS
     Route: 042
     Dates: start: 20070326, end: 20070709
  3. OXALIPLATIN [Suspect]
     Indication: COLORECTAL CANCER METASTATIC
     Dosage: 65 MILLIGRAM/SQ METER 2 WEEK, INTRAVENOUS DRIP
     Route: 041
     Dates: start: 20070326, end: 20070709
  4. BEVACIZUMAB [Suspect]
     Indication: COLORECTAL CANCER METASTATIC
     Dosage: 385.5 2 WEEK, INTRAVENOUS DRIP
     Route: 041
     Dates: start: 20070326, end: 20070709
  5. WARFARIN SODIUM [Concomitant]
  6. LOSARTAN POTASSIUM [Concomitant]
  7. DILTIAZEM [Concomitant]
  8. FAMOTIDINE [Concomitant]
  9. DIGOXIN [Concomitant]
  10. ATORVASTATIN CALCIUM [Concomitant]
  11. MULTI-VITAMIN [Concomitant]

REACTIONS (5)
  - ANAEMIA [None]
  - DEHYDRATION [None]
  - PARANEOPLASTIC SYNDROME [None]
  - SEPSIS [None]
  - STOMATITIS [None]
